FAERS Safety Report 11664663 (Version 1)
Quarter: 2015Q4

REPORT INFORMATION
  Report Type: Spontaneous
  Country: None (occurrence: None)
  Receive Date: 20151026
  Receipt Date: 20151026
  Transmission Date: 20160304
  Serious: Yes (Disabling)
  Sender: FDA-Public Use
  Company Number: None

PATIENT
  Age: 35 Year
  Sex: Female
  Weight: 70.76 kg

DRUGS (1)
  1. CIPROFLOXACIN. [Suspect]
     Active Substance: CIPROFLOXACIN
     Indication: URINARY TRACT INFECTION
     Route: 048
     Dates: start: 20150916, end: 20150922

REACTIONS (12)
  - Dysstasia [None]
  - Joint stiffness [None]
  - Anxiety [None]
  - Asthenia [None]
  - Nausea [None]
  - Myalgia [None]
  - Muscle spasms [None]
  - Gait disturbance [None]
  - Insomnia [None]
  - Pruritus [None]
  - Fatigue [None]
  - Food intolerance [None]

NARRATIVE: CASE EVENT DATE: 20150916
